FAERS Safety Report 9553271 (Version 1)
Quarter: 2013Q3

REPORT INFORMATION
  Report Type: Spontaneous
  Country: US (occurrence: None)
  Receive Date: 20130724
  Receipt Date: 20130724
  Transmission Date: 20140515
  Serious: Yes (Hospitalization)
  Sender: FDA-Public Use
  Company Number: PHEH2013US002834

PATIENT
  Age: 75 Year
  Sex: Female
  Weight: 53.5 kg

DRUGS (1)
  1. RECLAST [Suspect]
     Dosage: 5 MG, YEARLY, INTRAVENOUS
     Route: 042

REACTIONS (2)
  - Musculoskeletal chest pain [None]
  - Infusion site rash [None]
